FAERS Safety Report 17989353 (Version 1)
Quarter: 2020Q3

REPORT INFORMATION
  Report Type: Spontaneous
  Country: FI (occurrence: FI)
  Receive Date: 20200707
  Receipt Date: 20200707
  Transmission Date: 20201103
  Serious: Yes (Other)
  Sender: FDA-Public Use
  Company Number: FI-PFIZER INC-2020255056

PATIENT
  Sex: Male

DRUGS (1)
  1. SALAZOPYRIN [Suspect]
     Active Substance: SULFASALAZINE
     Dosage: UNK
     Route: 064
     Dates: end: 2020

REACTIONS (5)
  - Jaundice neonatal [Unknown]
  - Total bile acids increased [Unknown]
  - Maternal exposure during pregnancy [Unknown]
  - Blood bilirubin increased [Unknown]
  - Neonatal cholestasis [Unknown]

NARRATIVE: CASE EVENT DATE: 20200615
